FAERS Safety Report 13906278 (Version 1)
Quarter: 2017Q3

REPORT INFORMATION
  Report Type: Spontaneous
  Country: PL (occurrence: PL)
  Receive Date: 20170825
  Receipt Date: 20170825
  Transmission Date: 20171127
  Serious: Yes (Hospitalization, Other)
  Sender: FDA-Public Use
  Company Number: PL-PFIZER INC-2017366140

PATIENT
  Sex: Female

DRUGS (3)
  1. SUNITINIB MALATE. [Suspect]
     Active Substance: SUNITINIB MALATE
     Indication: RENAL CANCER
  2. SUNITINIB MALATE. [Suspect]
     Active Substance: SUNITINIB MALATE
     Indication: METASTATIC NEOPLASM
     Dosage: 50 MG, THE 4/6 WEEK REGIMEN
     Route: 048
     Dates: start: 20111102
  3. VITAMIN B12 AND FOLIC ACID [Concomitant]
     Dosage: UNK

REACTIONS (8)
  - Anaemia megaloblastic [Unknown]
  - Dehydration [Unknown]
  - Hyperthyroidism [Unknown]
  - Neoplasm progression [Unknown]
  - Diarrhoea [Unknown]
  - Hypothyroidism [Unknown]
  - Electrolyte imbalance [Unknown]
  - Toxicity to various agents [Unknown]

NARRATIVE: CASE EVENT DATE: 20111102
